FAERS Safety Report 19966120 (Version 2)
Quarter: 2021Q4

REPORT INFORMATION
  Report Type: Spontaneous
  Country: CZ (occurrence: CZ)
  Receive Date: 20211019
  Receipt Date: 20211208
  Transmission Date: 20220304
  Serious: Yes (Hospitalization)
  Sender: FDA-Public Use
  Company Number: CZ-MYLANLABS-2021M1067346

PATIENT
  Age: 39 Year
  Sex: Male

DRUGS (11)
  1. IBUPROFEN [Suspect]
     Active Substance: IBUPROFEN
     Indication: Migraine
     Dosage: UNK
     Route: 065
  2. SUMATRIPTAN [Suspect]
     Active Substance: SUMATRIPTAN
     Indication: Migraine
     Dosage: UNK
     Route: 048
  3. VENLAFAXINE [Suspect]
     Active Substance: VENLAFAXINE HYDROCHLORIDE
     Indication: Migraine
     Dosage: 75 MILLIGRAM, ONCE A DAY
     Route: 065
     Dates: start: 202010, end: 202101
  4. AMITRIPTYLINE [Suspect]
     Active Substance: AMITRIPTYLINE
     Indication: Migraine prophylaxis
     Dosage: 25 MILLIGRAM, ONCE A DAY
     Route: 065
     Dates: start: 201805
  5. AMITRIPTYLINE [Suspect]
     Active Substance: AMITRIPTYLINE
     Dosage: 25 UNK
     Route: 065
     Dates: start: 201808
  6. SUMATRIPTAN [Suspect]
     Active Substance: SUMATRIPTAN
     Indication: Migraine
     Dosage: UNK
     Route: 058
  7. VALPROIC ACID [Suspect]
     Active Substance: VALPROIC ACID
     Indication: Migraine prophylaxis
     Dosage: 600 MILLIGRAM, ONCE A DAY
     Route: 065
     Dates: start: 2020, end: 2020
  8. VALPROATE [Concomitant]
     Active Substance: VALPROIC ACID
     Indication: Migraine prophylaxis
     Dosage: 600 MILLIGRAM, ONCE A DAY
     Route: 065
     Dates: start: 202005
  9. CINNARIZINE [Concomitant]
     Active Substance: CINNARIZINE
     Indication: Migraine prophylaxis
     Dosage: 25 MILLIGRAM, ONCE A DAY
     Route: 065
     Dates: start: 201803
  10. CINNARIZINE [Concomitant]
     Active Substance: CINNARIZINE
     Dosage: 25 MILLIGRAM, ONCE A DAY
     Route: 065
     Dates: start: 201803, end: 201805
  11. ELETRIPTAN HYDROBROMIDE [Concomitant]
     Active Substance: ELETRIPTAN HYDROBROMIDE
     Indication: Migraine
     Dosage: UNK
     Route: 065

REACTIONS (6)
  - Intentional product misuse [Unknown]
  - Detoxification [Unknown]
  - Migraine [Unknown]
  - Medication overuse headache [Unknown]
  - Extra dose administered [Unknown]
  - Drug ineffective [Unknown]
